FAERS Safety Report 10677337 (Version 1)
Quarter: 2014Q4

REPORT INFORMATION
  Report Type: Spontaneous
  Country: US (occurrence: US)
  Receive Date: 20141226
  Receipt Date: 20141226
  Transmission Date: 20150529
  Serious: No
  Sender: FDA-Public Use
  Company Number: US-009507513-1412USA000222

PATIENT
  Sex: Male

DRUGS (3)
  1. PEGASYS [Suspect]
     Active Substance: PEGINTERFERON ALFA-2A
     Indication: CHRONIC HEPATITIS C
     Dosage: 180 MICROGRAM, QW
     Route: 058
     Dates: start: 20120109
  2. VICTRELIS [Suspect]
     Active Substance: BOCEPREVIR
     Indication: CHRONIC HEPATITIS C
     Dosage: 800 MG THRICE A DAY
     Route: 048
     Dates: start: 20120206
  3. REBETOL [Suspect]
     Active Substance: RIBAVIRIN
     Indication: CHRONIC HEPATITIS C
     Dosage: 1000 MG/DAY DIVIDED DOSES ORALLY 600/400
     Route: 048
     Dates: start: 20120109

REACTIONS (6)
  - Pyrexia [Unknown]
  - Malaise [Unknown]
  - Eating disorder [Unknown]
  - Dysphagia [Unknown]
  - Oral candidiasis [Unknown]
  - Bronchitis [Unknown]

NARRATIVE: CASE EVENT DATE: 2012
